FAERS Safety Report 5243544-5 (Version None)
Quarter: 2007Q1

REPORT INFORMATION
  Report Type: 
  Country: None (occurrence: None)
  Receive Date: 20070222
  Receipt Date: 20070213
  Transmission Date: 20070707
  Serious: No
  Sender: FDA-Public Use
  Company Number: PHHO2007BR02264

PATIENT
  Age: 60 Year
  Sex: Female

DRUGS (5)
  1. OLCADIL [Concomitant]
  2. SIMVASTATIN [Concomitant]
  3. ASPIRIN [Concomitant]
  4. LOSARTAN POTASSIUM AND HYDROCHLOROTHIAZIDE [Concomitant]
  5. STARFORM [Suspect]
     Indication: DIABETES MELLITUS
     Dosage: 2 TABS OF EACH DAILY
     Route: 048

REACTIONS (6)
  - ANXIETY [None]
  - CHILLS [None]
  - DYSPNOEA [None]
  - NAUSEA [None]
  - PALPITATIONS [None]
  - SYNCOPE [None]
